FAERS Safety Report 5866156-9 (Version None)
Quarter: 2008Q3

REPORT INFORMATION
  Report Type: 
  Country: None (occurrence: None)
  Receive Date: 20080829
  Receipt Date: 20080821
  Transmission Date: 20090109
  Serious: Yes (Hospitalization, Disabling, Other)
  Sender: FDA-Public Use
  Company Number: US-MERCK-0805USA01248

PATIENT
  Age: 71 Year
  Sex: Female

DRUGS (3)
  1. FOSAMAX [Suspect]
     Indication: OSTEOPOROSIS
     Route: 048
     Dates: start: 20030613, end: 20060623
  2. BENICAR [Concomitant]
     Indication: HYPERTENSION
     Route: 065
     Dates: start: 19800101
  3. SIMVASTATIN [Concomitant]
     Indication: BLOOD CHOLESTEROL INCREASED
     Route: 065
     Dates: start: 19950101

REACTIONS (4)
  - ADVERSE EVENT [None]
  - ARTHROPATHY [None]
  - OSTEOMYELITIS [None]
  - OSTEONECROSIS [None]
